FAERS Safety Report 6095238-4 (Version None)
Quarter: 2009Q1

REPORT INFORMATION
  Report Type: 
  Country: None (occurrence: None)
  Receive Date: 20090227
  Receipt Date: 20080220
  Transmission Date: 20090719
  Serious: No
  Sender: FDA-Public Use
  Company Number: A0710766A

PATIENT
  Age: 16 Year
  Sex: Female

DRUGS (5)
  1. LAMICTAL [Suspect]
     Indication: BIPOLAR DISORDER
     Dosage: 200MG TWICE PER DAY
     Route: 048
     Dates: start: 20060601
  2. ZYPREXA [Concomitant]
  3. PROZAC [Concomitant]
  4. TOPAMAX [Concomitant]
  5. GEODON [Concomitant]

REACTIONS (2)
  - MOUTH ULCERATION [None]
  - RASH [None]
